FAERS Safety Report 24235268 (Version 1)
Quarter: 2024Q3

REPORT INFORMATION
  Report Type: Report from Study
  Country: US (occurrence: US)
  Receive Date: 20240821
  Receipt Date: 20240821
  Transmission Date: 20241017
  Serious: No
  Sender: SUNOVION
  Company Number: US-SUMITOMO PHARMA SWITZERLAND GMBH-2024SPA000337

PATIENT

DRUGS (8)
  1. ORGOVYX [Suspect]
     Active Substance: RELUGOLIX
     Indication: Prostate cancer
     Dosage: 360 MG, SINGLE
     Route: 048
     Dates: start: 20240718, end: 20240718
  2. ORGOVYX [Suspect]
     Active Substance: RELUGOLIX
     Dosage: 120 MG, QD
     Route: 048
     Dates: start: 20240719
  3. MUPIROCIN [Concomitant]
     Active Substance: MUPIROCIN
     Dosage: UNKNOWN
     Route: 065
  4. AFRIN [Concomitant]
     Active Substance: OXYMETAZOLINE
     Dosage: UNKNOWN
     Route: 065
  5. PANTOPRAZOLE [Concomitant]
     Active Substance: PANTOPRAZOLE
     Dosage: UNKNOWN
     Route: 065
  6. TAMSULOSIN [Concomitant]
     Active Substance: TAMSULOSIN
     Dosage: AMSULOSIN
     Route: 065
  7. Joint health plus [Concomitant]
     Dosage: UNKNOWN
     Route: 065
  8. ZINC [Concomitant]
     Active Substance: ZINC
     Route: 065

REACTIONS (3)
  - Pollakiuria [Unknown]
  - Abdominal discomfort [Recovered/Resolved]
  - Fatigue [Unknown]
